FAERS Safety Report 5235840-2 (Version None)
Quarter: 2007Q1

REPORT INFORMATION
  Report Type: 
  Country: None (occurrence: None)
  Receive Date: 20061208
  Receipt Date: 20060510
  Transmission Date: 20070707
  Serious: Yes (Other)
  Sender: FDA-Public Use
  Company Number: 2006UW09221

PATIENT
  Age: 50 Year
  Sex: Male
  Weight: 99.7 kg

DRUGS (7)
  1. CRESTOR [Suspect]
     Indication: BLOOD CHOLESTEROL INCREASED
     Dosage: 10 MG PO
     Route: 048
     Dates: start: 20060401
  2. LYRICA [Concomitant]
  3. FENTANYL [Concomitant]
  4. DILAUDID [Concomitant]
  5. CYMBALTA [Concomitant]
  6. XANAX [Concomitant]
  7. ROBAXIN [Concomitant]

REACTIONS (2)
  - EYE DISCHARGE [None]
  - MYALGIA [None]
